FAERS Safety Report 9991658 (Version 5)
Quarter: 2014Q3

REPORT INFORMATION
  Report Type: Report from Study
  Country: US (occurrence: US)
  Receive Date: 20140310
  Receipt Date: 20140717
  Transmission Date: 20150326
  Serious: Yes (Life-Threatening, Hospitalization)
  Sender: FDA-Public Use
  Company Number: US-SA-2014SA029562

PATIENT
  Age: 67 Year
  Sex: Female
  Weight: 92.1 kg

DRUGS (38)
  1. MICAFUNGIN [Concomitant]
     Active Substance: MICAFUNGIN
  2. BUSULFAN [Concomitant]
     Active Substance: BUSULFAN
     Dates: start: 20140215, end: 20140215
  3. AMIODARONE [Concomitant]
     Active Substance: AMIODARONE
     Route: 042
  4. HYDROCORTISONE. [Concomitant]
     Active Substance: HYDROCORTISONE
     Route: 042
     Dates: start: 20140214
  5. VANCOMYCIN [Concomitant]
     Active Substance: VANCOMYCIN
     Route: 042
     Dates: start: 20140225
  6. ACTIGALL [Concomitant]
     Active Substance: URSODIOL
  7. TACROLIMUS. [Concomitant]
     Active Substance: TACROLIMUS
  8. CLOTRIMAZOLE. [Concomitant]
     Active Substance: CLOTRIMAZOLE
     Dosage: FIVE TIMES A DAY
     Route: 048
     Dates: start: 20140210
  9. ACYCLOVIR. [Concomitant]
     Active Substance: ACYCLOVIR
     Route: 042
     Dates: start: 20140223
  10. PREDNISONE. [Concomitant]
     Active Substance: PREDNISONE
     Route: 065
  11. CELLCEPT [Concomitant]
     Active Substance: MYCOPHENOLATE MOFETIL\MYCOPHENOLATE MOFETIL HYDROCHLORIDE
  12. INSULIN LISPRO [Concomitant]
     Active Substance: INSULIN LISPRO
  13. BIOTENE [Concomitant]
     Active Substance: SODIUM MONOFLUOROPHOSPHATE
     Dosage: MOUTH RINSE; SIX TIMES A DAY
     Dates: start: 20140210
  14. PRISTIQ EXTENDED RELEASE [Concomitant]
     Active Substance: DESVENLAFAXINE SUCCINATE
     Route: 048
     Dates: start: 20140212
  15. POTASSIUM CHLORIDE. [Concomitant]
     Active Substance: POTASSIUM CHLORIDE
     Route: 042
     Dates: start: 20140224
  16. CLOFARABINE [Suspect]
     Active Substance: CLOFARABINE
     Indication: BONE MARROW CONDITIONING REGIMEN
     Route: 042
     Dates: start: 20140210, end: 20140214
  17. MELPHALAN [Suspect]
     Active Substance: MELPHALAN
     Indication: BONE MARROW CONDITIONING REGIMEN
     Route: 042
     Dates: start: 20140215, end: 20140215
  18. FLAGYL [Concomitant]
     Active Substance: METRONIDAZOLE\METRONIDAZOLE HYDROCHLORIDE
     Route: 042
     Dates: start: 20140220
  19. ATOVAQUONE. [Concomitant]
     Active Substance: ATOVAQUONE
  20. DILTIAZEM [Concomitant]
     Active Substance: DILTIAZEM
  21. TYLENOL [Concomitant]
     Active Substance: ACETAMINOPHEN
     Route: 048
     Dates: start: 20140225, end: 20140225
  22. OCTREOTIDE [Concomitant]
     Active Substance: OCTREOTIDE
  23. METOPROLOL [Concomitant]
     Active Substance: METOPROLOL
  24. CHOLECALCIFEROL [Concomitant]
     Active Substance: CHOLECALCIFEROL
     Route: 048
     Dates: start: 20140217
  25. MYCOPHENOLATE MOFETIL. [Concomitant]
     Active Substance: MYCOPHENOLATE MOFETIL
  26. HYDROCORTISONE. [Concomitant]
     Active Substance: HYDROCORTISONE
     Route: 042
     Dates: start: 20140225
  27. LOMOTIL [Concomitant]
     Active Substance: ATROPINE SULFATE\DIPHENOXYLATE HYDROCHLORIDE
     Route: 048
     Dates: start: 20140221
  28. CARAFATE [Concomitant]
     Active Substance: SUCRALFATE
  29. SIROLIMUS. [Concomitant]
     Active Substance: SIROLIMUS
  30. MEROPENEM. [Concomitant]
     Active Substance: MEROPENEM
  31. PANTOPRAZOLE [Concomitant]
     Active Substance: PANTOPRAZOLE SODIUM
  32. ZOFRAN [Concomitant]
     Active Substance: ONDANSETRON HYDROCHLORIDE
     Route: 042
     Dates: start: 20140221
  33. SOLU-MEDROL [Concomitant]
     Active Substance: METHYLPREDNISOLONE SODIUM SUCCINATE
  34. INSULIN [Concomitant]
     Active Substance: INSULIN NOS
  35. MEPRON [Concomitant]
     Active Substance: ATOVAQUONE
  36. PEPCID [Concomitant]
     Active Substance: FAMOTIDINE
     Route: 042
     Dates: start: 20140220
  37. HYDROCORTISONE. [Concomitant]
     Active Substance: HYDROCORTISONE
     Route: 061
     Dates: start: 20140215
  38. MORPHINE [Concomitant]
     Active Substance: MORPHINE
     Route: 042
     Dates: start: 20140221

REACTIONS (3)
  - Respiratory failure [Recovered/Resolved]
  - Atrial fibrillation [Recovered/Resolved]
  - Pneumonia fungal [Unknown]

NARRATIVE: CASE EVENT DATE: 20140225
